FAERS Safety Report 8312573-7 (Version None)
Quarter: 2012Q2

REPORT INFORMATION
  Report Type: 
  Country: None (occurrence: None)
  Receive Date: 20120424
  Receipt Date: 20120410
  Transmission Date: 20120825
  Serious: Yes (Other)
  Sender: FDA-Public Use
  Company Number: 2012P1012631

PATIENT
  Age: 68 Year
  Sex: Male
  Weight: 74.8435 kg

DRUGS (7)
  1. WARFARIN SODIUM [Suspect]
     Indication: CEREBROVASCULAR ACCIDENT PROPHYLAXIS
  2. CARVEDILOL [Concomitant]
  3. OMEPRAZOLE [Concomitant]
  4. LOSARTAN POTASSIUM [Concomitant]
  5. SIMVASTATIN [Concomitant]
  6. WARFARIN SODIUM [Suspect]
     Indication: CEREBROVASCULAR ACCIDENT PROPHYLAXIS
     Dates: start: 20080101
  7. MAGNESIUM OXIDE [Concomitant]

REACTIONS (6)
  - AMNESIA [None]
  - STRESS [None]
  - SKIN FISSURES [None]
  - SURGERY [None]
  - CONFUSIONAL STATE [None]
  - SKIN DISORDER [None]
